FAERS Safety Report 8099163-9 (Version None)
Quarter: 2012Q1

REPORT INFORMATION
  Report Type: 
  Country: None (occurrence: None)
  Receive Date: 20120129
  Receipt Date: 20110930
  Transmission Date: 20120608
  Serious: No
  Sender: FDA-Public Use
  Company Number: US-ABBOTT-11P-163-0860692-00

PATIENT
  Sex: Male
  Weight: 73.094 kg

DRUGS (3)
  1. IRON [Concomitant]
     Indication: PRODUCT USED FOR UNKNOWN INDICATION
     Route: 048
  2. HUMIRA [Suspect]
     Indication: INFLAMMATORY BOWEL DISEASE
  3. UNKNOWN HERBAL SUPPLEMENT [Concomitant]
     Indication: PHYTOTHERAPY

REACTIONS (1)
  - RASH PUSTULAR [None]
